FAERS Safety Report 25539792 (Version 1)
Quarter: 2025Q3

REPORT INFORMATION
  Report Type: Spontaneous
  Country: US (occurrence: None)
  Receive Date: 20250710
  Receipt Date: 20250710
  Transmission Date: 20251020
  Serious: No
  Sender: FDA-CTU
  Company Number: None

PATIENT
  Age: 69 Year
  Sex: Female
  Weight: 55.35 kg

DRUGS (17)
  1. MUPIROCIN [Suspect]
     Active Substance: MUPIROCIN
     Indication: Localised infection
     Dosage: OTHER STRENGTH : APPLY DAILY;?FREQUENCY : DAILY;?
     Route: 061
     Dates: start: 20250708, end: 20250709
  2. DEVICE [Concomitant]
     Active Substance: DEVICE
  3. Trelegy 100/250/50 [Concomitant]
  4. LOSARTAN [Concomitant]
     Active Substance: LOSARTAN
  5. ROSUVASTATIN [Concomitant]
     Active Substance: ROSUVASTATIN
  6. BUPROPION XL [Concomitant]
     Active Substance: BUPROPION HYDROCHLORIDE
  7. Estradriol patch 0.75 mg 2/wk [Concomitant]
  8. Esomeprazol 20 mg [Concomitant]
  9. PRN: Loratadine 10 mg [Concomitant]
  10. Alprazolam ? mg [Concomitant]
  11. Vit D3 2000 mg [Concomitant]
  12. Biotin 10,000 mcg [Concomitant]
  13. B12 2500 mg [Concomitant]
  14. Black Elderberry Immune Support 1344 mg [Concomitant]
  15. DEMANNOSE [Concomitant]
     Active Substance: DEMANNOSE
  16. Inulin FOS 400 mg [Concomitant]
  17. L-tyrosine 500 mg [Concomitant]

REACTIONS (4)
  - Application site pain [None]
  - Nausea [None]
  - Diarrhoea [None]
  - Hypophagia [None]

NARRATIVE: CASE EVENT DATE: 20250709
